FAERS Safety Report 18606087 (Version 1)
Quarter: 2020Q4

REPORT INFORMATION
  Report Type: Spontaneous
  Country: DE (occurrence: DE)
  Receive Date: 20201211
  Receipt Date: 20201211
  Transmission Date: 20210114
  Serious: Yes (Hospitalization, Other)
  Sender: FDA-Public Use
  Company Number: DE-PBT-000370

PATIENT
  Age: 43 Year
  Sex: Female

DRUGS (5)
  1. PREDNISOLONE. [Suspect]
     Active Substance: PREDNISOLONE
     Indication: IMMUNOSUPPRESSANT DRUG THERAPY
     Dosage: UNK
     Route: 065
  2. ENVARSUS XR [Suspect]
     Active Substance: TACROLIMUS
     Indication: IMMUNOSUPPRESSION
     Dosage: UNK
     Route: 065
  3. BASILIXIMAB [Suspect]
     Active Substance: BASILIXIMAB
     Indication: IMMUNOSUPPRESSANT DRUG THERAPY
     Dosage: UNK
     Route: 065
  4. MYCOPHENOLATE MOFETIL. [Suspect]
     Active Substance: MYCOPHENOLATE MOFETIL
     Indication: IMMUNOSUPPRESSANT DRUG THERAPY
     Dosage: UNK
     Route: 065
  5. VALGANCICLOVIR HYDROCHLORIDE. [Concomitant]
     Active Substance: VALGANCICLOVIR HYDROCHLORIDE
     Indication: ANTIVIRAL PROPHYLAXIS
     Dosage: UNK
     Route: 065

REACTIONS (11)
  - Hypervolaemia [Recovering/Resolving]
  - Oedema peripheral [Recovering/Resolving]
  - Pericarditis constrictive [Recovering/Resolving]
  - Anuria [Recovered/Resolved]
  - Renal tubular necrosis [Recovered/Resolved]
  - Polyuria [Recovered/Resolved]
  - Drug level increased [Recovered/Resolved]
  - Transplant failure [Recovered/Resolved]
  - Cardiac failure [Unknown]
  - Blood creatinine increased [Recovering/Resolving]
  - Ascites [Recovering/Resolving]
